FAERS Safety Report 21966555 (Version 1)
Quarter: 2023Q1

REPORT INFORMATION
  Report Type: Spontaneous
  Country: IT (occurrence: IT)
  Receive Date: 20230208
  Receipt Date: 20230208
  Transmission Date: 20230418
  Serious: Yes (Death, Other)
  Sender: FDA-Public Use
  Company Number: IT-009507513-2212ITA009405

PATIENT
  Age: 71 Year
  Sex: Male

DRUGS (3)
  1. CISPLATIN [Suspect]
     Active Substance: CISPLATIN
     Indication: Product used for unknown indication
     Dosage: UNK
     Route: 065
  2. PEMBROLIZUMAB [Suspect]
     Active Substance: PEMBROLIZUMAB
     Indication: Lung opacity
     Dosage: UNK
     Route: 065
     Dates: start: 202111
  3. PEMBROLIZUMAB [Suspect]
     Active Substance: PEMBROLIZUMAB
     Indication: Lymphadenopathy

REACTIONS (10)
  - Death [Fatal]
  - Malignant neoplasm progression [Unknown]
  - Acute kidney injury [Recovered/Resolved]
  - Eastern Cooperative Oncology Group performance status abnormal [Unknown]
  - Cancer pain [Unknown]
  - Drug ineffective [Unknown]
  - Weight decreased [Unknown]
  - Constipation [Not Recovered/Not Resolved]
  - Dyspnoea [Unknown]
  - Tinnitus [Recovered/Resolved]

NARRATIVE: CASE EVENT DATE: 20220101
